FAERS Safety Report 17855256 (Version 1)
Quarter: 2020Q2

REPORT INFORMATION
  Report Type: Spontaneous
  Country: US (occurrence: US)
  Receive Date: 20200603
  Receipt Date: 20200603
  Transmission Date: 20200714
  Serious: Yes (Hospitalization)
  Sender: FDA-Public Use
  Company Number: None

PATIENT
  Age: 55 Year
  Sex: Male
  Weight: 69.4 kg

DRUGS (7)
  1. ATORVASTATIN 80 MG PO NIGHTLY [Concomitant]
  2. INSULIN DETEMIR PEN NIGHTLY [Concomitant]
  3. OZEMPIC [Suspect]
     Active Substance: SEMAGLUTIDE
     Indication: TYPE 2 DIABETES MELLITUS
     Dosage: ?          OTHER FREQUENCY:WEEKLY;?
     Route: 058
     Dates: start: 20190603, end: 20190619
  4. AMLODIPINE 10 MG PO DAILY [Concomitant]
  5. ASPIRIN 81 MG PO DAILY [Concomitant]
  6. DILTIAZEM 120 MG ER CAPSULE PO DAILY [Concomitant]
  7. CARVEDILOL 3.125 MG PO BID [Concomitant]

REACTIONS (1)
  - Pancreatitis [None]

NARRATIVE: CASE EVENT DATE: 20190621
